FAERS Safety Report 4751507-9 (Version None)
Quarter: 2005Q3

REPORT INFORMATION
  Report Type: 
  Country: None (occurrence: None)
  Receive Date: 20050824
  Receipt Date: 20050812
  Transmission Date: 20060218
  Serious: Yes (Other)
  Sender: FDA-Public Use
  Company Number: US-GLAXOSMITHKLINE-A0569996A

PATIENT
  Age: 36 Year
  Sex: Female
  Weight: 70 kg

DRUGS (1)
  1. MEMBERS MARK NTS ORIGINAL, 21MG [Suspect]
     Route: 062
     Dates: start: 20050811, end: 20050811

REACTIONS (1)
  - ANAPHYLACTIC REACTION [None]
